FAERS Safety Report 16137367 (Version 2)
Quarter: 2019Q3

REPORT INFORMATION
  Report Type: Spontaneous
  Country: DE (occurrence: DE)
  Receive Date: 20190330
  Receipt Date: 20190913
  Transmission Date: 20191004
  Serious: Yes (Hospitalization, Other)
  Sender: FDA-Public Use
  Company Number: DE-AUROBINDO-AUR-APL-2019-016511

PATIENT
  Age: 80 Year
  Sex: Male
  Weight: 82 kg

DRUGS (34)
  1. AMLODIPIN [Concomitant]
     Active Substance: AMLODIPINE BESYLATE
     Indication: HYPERTENSION
     Dosage: 7.5 MILLIGRAM, ONCE A DAY
     Route: 048
     Dates: start: 201407
  2. KEVATRIL [Concomitant]
     Active Substance: GRANISETRON HYDROCHLORIDE
     Indication: NAUSEA
     Dosage: 1 DOSAGE FORM, EVERY 3 WEEKS
     Route: 042
     Dates: start: 20150924
  3. XELODA [Suspect]
     Active Substance: CAPECITABINE
     Indication: COLORECTAL CANCER METASTATIC
     Dosage: 3000 MILLIGRAM,3 WEEK
     Route: 048
     Dates: start: 20150924
  4. XELODA [Suspect]
     Active Substance: CAPECITABINE
     Dosage: 2500 MILLIGRAM,3 WEEK
     Route: 048
     Dates: start: 20160118
  5. OXALIPLATIN. [Suspect]
     Active Substance: OXALIPLATIN
     Dosage: 120 MILLIGRAM, EVERY 3 WEEKS
     Route: 042
     Dates: start: 20160609, end: 20160609
  6. ASPIRIN. [Concomitant]
     Active Substance: ASPIRIN
     Indication: PRODUCT USED FOR UNKNOWN INDICATION
     Dosage: 100 MILLIGRAM, ONCE A DAY
     Route: 048
     Dates: start: 2001
  7. GRANISETRON [Concomitant]
     Active Substance: GRANISETRON
     Indication: NAUSEA
     Dosage: 1 MILLIGRAM, DAY 1 BEFORE CHEMOTHERAPY
     Route: 042
     Dates: start: 20160413
  8. XELODA [Suspect]
     Active Substance: CAPECITABINE
     Dosage: 2000 MILLIGRAM,3 WEEK
     Route: 048
     Dates: start: 20160609
  9. OXALIPLATIN. [Suspect]
     Active Substance: OXALIPLATIN
     Dosage: 119.6 MILLIGRAM, EVERY 3 WEEKS
     Route: 042
     Dates: start: 20161004, end: 20161004
  10. CAPECITABINE. [Suspect]
     Active Substance: CAPECITABINE
     Indication: COLORECTAL CANCER METASTATIC
     Dosage: 3000 MILLIGRAM, EVERY 3 WEEKS
     Route: 048
     Dates: start: 20150924, end: 20151118
  11. FOSINORM [Concomitant]
     Indication: HYPERTENSION
     Dosage: 0.5 DOSAGE FORM, ONCE A DAY
     Route: 048
     Dates: start: 2001
  12. ATROPIN [Concomitant]
     Active Substance: ATROPINE
     Indication: CHOLINERGIC SYNDROME
     Dosage: 0.25 MILLIGRAM, EVERY 3 WEEKS
     Route: 058
     Dates: start: 20150924
  13. ATROPIN [Concomitant]
     Active Substance: ATROPINE
     Indication: DIARRHOEA
  14. ENOXAPARIN [Concomitant]
     Active Substance: ENOXAPARIN
     Indication: THROMBOSIS
     Dosage: 0.4 MILLILITER, ONCE A DAY
     Route: 058
     Dates: start: 20151122
  15. DIMENHYDRINATE. [Concomitant]
     Active Substance: DIMENHYDRINATE
     Indication: VOMITING
     Dosage: UNK, 1 AMPOLE
     Route: 042
     Dates: start: 20151126, end: 20151127
  16. FORTECORTIN [Concomitant]
     Active Substance: DEXAMETHASONE
     Indication: VOMITING
     Dosage: 10 MILLIGRAM, EVERY 3 WEEKS
     Route: 042
     Dates: start: 20150924
  17. PHYTOMENADIONE [Concomitant]
     Active Substance: PHYTONADIONE
     Dosage: 10 MILLIGRAM
     Route: 042
     Dates: start: 20151120
  18. AVASTIN [Suspect]
     Active Substance: BEVACIZUMAB
     Indication: COLORECTAL CANCER METASTATIC
     Dosage: 495 MILLIGRAM,3 WEEK
     Route: 042
     Dates: start: 20160321
  19. AVASTIN [Suspect]
     Active Substance: BEVACIZUMAB
     Dosage: 615 MILLIGRAM,3 WEEK
     Route: 042
     Dates: start: 20151105
  20. AVASTIN [Suspect]
     Active Substance: BEVACIZUMAB
     Dosage: 615 MILLIGRAM,3 WEEK
     Route: 042
     Dates: start: 20150924
  21. IRINOTECAN [Concomitant]
     Active Substance: IRINOTECAN
     Indication: COLORECTAL CANCER
     Dosage: 323.2 MILLIGRAM, EVERY 3 WEEKS
     Route: 042
     Dates: start: 20150924
  22. CAPECITABINE. [Suspect]
     Active Substance: CAPECITABINE
     Dosage: 2500 MILLIGRAM, EVERY 3 WEEKS
     Route: 048
     Dates: start: 20160118
  23. FORTECORTIN [Concomitant]
     Active Substance: DEXAMETHASONE
     Indication: NAUSEA
  24. SIMVASTATIN. [Concomitant]
     Active Substance: SIMVASTATIN
     Indication: HYPERCHOLESTEROLAEMIA
     Dosage: 10 MILLIGRAM, ONCE A DAY
     Route: 048
     Dates: start: 2015
  25. OXALIPLATIN. [Suspect]
     Active Substance: OXALIPLATIN
     Indication: COLORECTAL CANCER METASTATIC
     Dosage: 167 MILLIGRAM, EVERY 3 WEEKS
     Route: 042
     Dates: start: 20160413, end: 20160504
  26. CAPECITABINE. [Suspect]
     Active Substance: CAPECITABINE
     Dosage: 2000 MILLIGRAM, EVERY 3 WEEKS
     Route: 048
     Dates: start: 20160609, end: 20160622
  27. GLIMEPIRID [Concomitant]
     Active Substance: GLIMEPIRIDE
     Indication: DIABETES MELLITUS
     Dosage: 2 MILLIGRAM, ONCE A DAY
     Route: 048
     Dates: start: 2011
  28. CAPECITABINE. [Suspect]
     Active Substance: CAPECITABINE
     Dosage: 2000 MILLIGRAM, EVERY 3 WEEKS
     Route: 048
     Dates: start: 20161004, end: 20161017
  29. BEVACIZUMAB. [Suspect]
     Active Substance: BEVACIZUMAB
     Indication: COLORECTAL CANCER METASTATIC
     Dosage: 615 MILLIGRAM,3 WEEK
     Route: 042
     Dates: start: 20150924
  30. BEVACIZUMAB. [Suspect]
     Active Substance: BEVACIZUMAB
     Dosage: 615 MILLIGRAM, EVERY 3 WEEKS
     Route: 042
     Dates: start: 20151105
  31. IRINOTECAN [Concomitant]
     Active Substance: IRINOTECAN
     Dosage: 220 MILLIGRAM, EVERY 3 WEEKS
     Route: 042
     Dates: start: 20160208
  32. IRINOTECAN [Concomitant]
     Active Substance: IRINOTECAN
     Dosage: 220.8 MILLIGRAM, EVERY 3 WEEKS, MOST RECENT DOSE RECEIVED ON 21/MAR/2016
     Route: 042
     Dates: start: 20160229
  33. DEXAMETHASON [Concomitant]
     Active Substance: DEXAMETHASONE
     Indication: NAUSEA
     Dosage: 8 MILLIGRAM, DAY 1 BEFORE CHEMOTHERAPY
     Route: 042
     Dates: start: 20160413
  34. PHYTOMENADIONE [Concomitant]
     Active Substance: PHYTONADIONE
     Indication: PRODUCT USED FOR UNKNOWN INDICATION
     Dosage: 10 MILLIGRAM
     Route: 042
     Dates: start: 20151124

REACTIONS (9)
  - Weight decreased [Not Recovered/Not Resolved]
  - Circulatory collapse [Recovered/Resolved]
  - Diarrhoea [Recovered/Resolved]
  - Proteinuria [Not Recovered/Not Resolved]
  - Prothrombin time prolonged [Recovered/Resolved]
  - Hypokalaemia [Recovered/Resolved]
  - Decreased appetite [Recovered/Resolved]
  - Dehydration [Recovered/Resolved]
  - Vomiting [Recovered/Resolved]

NARRATIVE: CASE EVENT DATE: 20150925
